FAERS Safety Report 5051819-8 (Version None)
Quarter: 2006Q3

REPORT INFORMATION
  Report Type: 
  Country: None (occurrence: None)
  Receive Date: 20060712
  Receipt Date: 20060712
  Transmission Date: 20061208
  Serious: Yes (Life-Threatening, Hospitalization, Other)
  Sender: FDA-Public Use
  Company Number: None

PATIENT
  Sex: Female
  Weight: 90.7194 kg

DRUGS (1)
  1. AMBIEN CR [Suspect]
     Indication: SOMNOLENCE
     Dosage: 12.5 MIL 1 AT P.M.
     Dates: start: 20060410, end: 20060610

REACTIONS (3)
  - ABNORMAL BEHAVIOUR [None]
  - AMNESIA [None]
  - CONVULSION [None]
